FAERS Safety Report 19760462 (Version 1)
Quarter: 2021Q3

REPORT INFORMATION
  Report Type: Spontaneous
  Country: US (occurrence: US)
  Receive Date: 20210825
  Receipt Date: 20210825
  Transmission Date: 20211014
  Serious: No
  Sender: FDA-Public Use
  Company Number: None

PATIENT
  Sex: Female

DRUGS (1)
  1. ZIEXTENZO [Suspect]
     Active Substance: PEGFILGRASTIM-BMEZ
     Indication: BREAST CANCER FEMALE
     Dosage: ?          OTHER FREQUENCY:24 HOURS AFTER CHE;?
     Route: 058
     Dates: start: 202106

REACTIONS (2)
  - Pain in extremity [None]
  - Ear pain [None]
